FAERS Safety Report 10855210 (Version 1)
Quarter: 2015Q1

REPORT INFORMATION
  Report Type: Spontaneous
  Country: IT (occurrence: IT)
  Receive Date: 20150223
  Receipt Date: 20150223
  Transmission Date: 20150721
  Serious: Yes (Hospitalization)
  Sender: FDA-Public Use
  Company Number: IT-TEVA-542145ISR

PATIENT
  Age: 15 Year
  Sex: Male

DRUGS (1)
  1. ISOTRETINOINA 10 MG SOFT CAPSULES (DIFA COOPER S.P.A. ) [Suspect]
     Active Substance: ISOTRETINOIN
     Indication: ACNE
     Dosage: 60 MILLIGRAM DAILY;
     Route: 048
     Dates: start: 20150123, end: 20150126

REACTIONS (1)
  - Enterocolitis haemorrhagic [Recovering/Resolving]

NARRATIVE: CASE EVENT DATE: 20150131
